FAERS Safety Report 21331547 (Version 1)
Quarter: 2022Q3

REPORT INFORMATION
  Report Type: Spontaneous
  Country: US (occurrence: US)
  Receive Date: 20220914
  Receipt Date: 20220914
  Transmission Date: 20221026
  Serious: Yes (Other)
  Sender: FDA-Public Use
  Company Number: US-MLMSERVICE-20220829-3758354-2

PATIENT
  Age: 20 Year
  Sex: Male

DRUGS (11)
  1. RISPERIDONE [Suspect]
     Active Substance: RISPERIDONE
     Indication: Schizophrenia
     Dosage: DOSE ABOVE 4 MG
     Route: 065
     Dates: start: 201906, end: 201906
  2. RISPERIDONE [Suspect]
     Active Substance: RISPERIDONE
     Dosage: 4 MILLIGRAM
     Route: 065
     Dates: start: 2019, end: 201906
  3. LORAZEPAM [Concomitant]
     Active Substance: LORAZEPAM
     Indication: Catatonia
     Dosage: 1 MILLIGRAM
     Route: 065
     Dates: start: 201901, end: 201901
  4. LORAZEPAM [Concomitant]
     Active Substance: LORAZEPAM
     Indication: Aggression
     Dosage: 2 MILLIGRAM
     Dates: start: 201901, end: 201902
  5. LORAZEPAM [Concomitant]
     Active Substance: LORAZEPAM
     Dosage: 3 MILLIGRAM
     Route: 065
     Dates: start: 201902, end: 201902
  6. LORAZEPAM [Concomitant]
     Active Substance: LORAZEPAM
     Dosage: 6 MILLIGRAM
     Route: 065
     Dates: start: 201902, end: 201902
  7. LORAZEPAM [Concomitant]
     Active Substance: LORAZEPAM
     Dosage: 5 MILLIGRAM
     Route: 065
     Dates: start: 201902, end: 201902
  8. LORAZEPAM [Concomitant]
     Active Substance: LORAZEPAM
     Dosage: 7 MILLIGRAM
     Route: 065
     Dates: start: 201902, end: 201903
  9. LORAZEPAM [Concomitant]
     Active Substance: LORAZEPAM
     Dosage: 8 MILLIGRAM
     Route: 065
     Dates: start: 201903, end: 201903
  10. LORAZEPAM [Concomitant]
     Active Substance: LORAZEPAM
     Dosage: 6 MILLIGRAM
     Route: 065
     Dates: start: 201903
  11. LEVOTHYROXINE [Concomitant]
     Active Substance: LEVOTHYROXINE
     Indication: Hypothyroidism
     Dosage: UNK
     Route: 065

REACTIONS (3)
  - Dystonia [Unknown]
  - Drug intolerance [Recovered/Resolved]
  - Treatment failure [Unknown]

NARRATIVE: CASE EVENT DATE: 20190601
